FAERS Safety Report 8623890-5 (Version None)
Quarter: 2012Q3

REPORT INFORMATION
  Report Type: 
  Country: None (occurrence: None)
  Receive Date: 20120827
  Receipt Date: 20120815
  Transmission Date: 20120928
  Serious: Yes (Hospitalization, Other)
  Sender: FDA-Public Use
  Company Number: US-ELI_LILLY_AND_COMPANY-US201204006647

PATIENT
  Sex: Female
  Weight: 65.76 kg

DRUGS (16)
  1. NORCO [Concomitant]
     Indication: BACK DISORDER
     Dosage: UNK, PRN
  2. VITAMIN B-12 [Concomitant]
     Dosage: UNK, 3/W
  3. SIMVASTATIN [Concomitant]
     Indication: BLOOD CHOLESTEROL
     Dosage: UNK, QD
  4. ZOFRAN [Concomitant]
     Indication: ABDOMINAL DISCOMFORT
  5. PEPCID AC [Concomitant]
     Dosage: UNK, BID
  6. METOCLOPRAMIDE HYDROCHLORIDE [Concomitant]
     Indication: NAUSEA
     Dosage: UNK, EVERY 6 HRS
  7. DIGOXIN [Concomitant]
     Dosage: 0.125 MG, QD
  8. FORTEO [Suspect]
     Dosage: 20 UG, QD
     Route: 058
     Dates: start: 20111115, end: 20120514
  9. ASCORBIC ACID [Concomitant]
     Dosage: UNK, QD
  10. AMLODIPINE [Concomitant]
  11. POTASSIUM [Concomitant]
  12. MACRODANTIN [Concomitant]
     Indication: URINARY TRACT INFECTION
     Dosage: 50 MG, EACH EVENING
  13. CYPROHEPTADINE HCL [Concomitant]
     Dosage: UNK, TID
  14. FORTEO [Suspect]
     Indication: OSTEOPOROSIS
     Dosage: 20 UG, QD
     Route: 058
     Dates: start: 20111115, end: 20120514
  15. DIOVAN [Concomitant]
  16. CO Q-10 [Concomitant]
     Dosage: 200 MG, QD

REACTIONS (12)
  - DIZZINESS [None]
  - ASTHENIA [None]
  - PAIN [None]
  - BLOOD CALCIUM INCREASED [None]
  - COLONIC PSEUDO-OBSTRUCTION [None]
  - ABDOMINAL DISCOMFORT [None]
  - INTESTINAL OBSTRUCTION [None]
  - MUSCULOSKELETAL DISCOMFORT [None]
  - MALAISE [None]
  - NAUSEA [None]
  - FATIGUE [None]
  - PNEUMONIA [None]
